FAERS Safety Report 25984408 (Version 1)
Quarter: 2025Q4

REPORT INFORMATION
  Report Type: Report from Study
  Country: CA (occurrence: CA)
  Receive Date: 20251031
  Receipt Date: 20251031
  Transmission Date: 20260117
  Serious: Yes (Hospitalization, Other)
  Sender: PFIZER
  Company Number: CA-PFIZER INC-2021024948

PATIENT
  Age: 74 Year
  Sex: Male
  Weight: 48 kg

DRUGS (7)
  1. RITUXIMAB [Suspect]
     Active Substance: RITUXIMAB
     Indication: Hairy cell leukaemia
     Dosage: UNK
     Route: 042
  2. ZELBORAF [Suspect]
     Active Substance: VEMURAFENIB
     Indication: Hairy cell leukaemia
     Dosage: 240 MG, 1 EVERY 5 DAYS
     Route: 048
  3. ZELBORAF [Suspect]
     Active Substance: VEMURAFENIB
     Dosage: 480 MG, 1 EVERY 5 DAYS
     Route: 048
  4. ZELBORAF [Suspect]
     Active Substance: VEMURAFENIB
     Dosage: 240 MG, 1 EVERY 5 DAYS
     Route: 048
  5. ZELBORAF [Suspect]
     Active Substance: VEMURAFENIB
     Indication: Hairy cell leukaemia
     Dosage: 960 MG,  1 EVERY 5 DAYS
     Route: 048
  6. CLADRIBINE [Concomitant]
     Active Substance: CLADRIBINE
     Dosage: UNK, SOLUTION INTRAVENOUS
  7. EUCERIN [DL- LACTIC ACID] [Concomitant]

REACTIONS (18)
  - Agranulocytosis [Not Recovered/Not Resolved]
  - Anaemia [Not Recovered/Not Resolved]
  - Asthenia [Not Recovered/Not Resolved]
  - Benign prostatic hyperplasia [Not Recovered/Not Resolved]
  - Dyspnoea exertional [Not Recovered/Not Resolved]
  - Fall [Not Recovered/Not Resolved]
  - Fatigue [Not Recovered/Not Resolved]
  - Femur fracture [Not Recovered/Not Resolved]
  - Gastrointestinal lymphoma [Not Recovered/Not Resolved]
  - Injection site pain [Not Recovered/Not Resolved]
  - Liver palpable [Not Recovered/Not Resolved]
  - Musculoskeletal pain [Not Recovered/Not Resolved]
  - Osteoporosis [Not Recovered/Not Resolved]
  - Overgrowth bacterial [Not Recovered/Not Resolved]
  - Pancytopenia [Not Recovered/Not Resolved]
  - Pruritus [Not Recovered/Not Resolved]
  - Rash [Not Recovered/Not Resolved]
  - Off label use [Unknown]
